FAERS Safety Report 9482316 (Version 1)
Quarter: 2013Q3

REPORT INFORMATION
  Report Type: Spontaneous
  Country: DE (occurrence: None)
  Receive Date: 20130822
  Receipt Date: 20130822
  Transmission Date: 20140515
  Serious: Yes (Hospitalization)
  Sender: FDA-Public Use
  Company Number: 2013-368

PATIENT
  Age: 43 Year
  Sex: Female
  Weight: 60 kg

DRUGS (9)
  1. CLOZAPINE (MANUFACTURER UNKNOWN) ORAL TABLET [Suspect]
     Indication: SCHIZOPHRENIA, PARANOID TYPE
     Route: 048
     Dates: start: 201106, end: 2011
  2. CLOZAPINE (MANUFACTURER UNKNOWN) ORAL TABLET [Suspect]
     Indication: HALLUCINATION, AUDITORY
     Route: 048
     Dates: start: 201106, end: 2011
  3. QUETIAPINE [Suspect]
     Indication: SCHIZOPHRENIA, PARANOID TYPE
     Route: 048
     Dates: start: 201106, end: 2011
  4. QUETIAPINE [Suspect]
     Indication: HALLUCINATION, AUDITORY
     Route: 048
     Dates: start: 201106, end: 2011
  5. BENPERIDOL [Concomitant]
  6. PROMETHAZINE [Concomitant]
  7. RAMIPRIL [Concomitant]
  8. HYDROCHLOROTHIAZIDE [Concomitant]
  9. MONTELUKAST [Concomitant]

REACTIONS (11)
  - Toxicity to various agents [None]
  - Colitis ischaemic [None]
  - General physical health deterioration [None]
  - Sepsis [None]
  - Disorientation [None]
  - Dysarthria [None]
  - Delirium [None]
  - Somnolence [None]
  - No therapeutic response [None]
  - Colitis ulcerative [None]
  - Bacterial infection [None]
